FAERS Safety Report 24929539 (Version 3)
Quarter: 2025Q3

REPORT INFORMATION
  Report Type: Spontaneous
  Country: US (occurrence: US)
  Receive Date: 20250205
  Receipt Date: 20250903
  Transmission Date: 20251020
  Serious: Yes (Other)
  Sender: BRISTOL-MYERS SQUIBB COMPANY
  Company Number: US-BRISTOL-MYERS SQUIBB COMPANY-2025-014385

PATIENT
  Age: 59 Year
  Sex: Male
  Weight: 83 kg

DRUGS (36)
  1. SOTYKTU [Suspect]
     Active Substance: DEUCRAVACITINIB
     Indication: Alopecia areata
     Dosage: 2 TABLETS EVERY DAY, ONE IN THE MORNING AND 1 IN THE EVENING
     Dates: start: 2023, end: 20240313
  2. ASPIRIN [Concomitant]
     Active Substance: ASPIRIN
     Indication: Product used for unknown indication
     Route: 048
     Dates: start: 20231221, end: 20231221
  3. PROTONIX [Concomitant]
     Active Substance: PANTOPRAZOLE SODIUM
     Indication: Product used for unknown indication
     Route: 048
     Dates: start: 20240118, end: 20240605
  4. DIOVAN HCT [Concomitant]
     Active Substance: HYDROCHLOROTHIAZIDE\VALSARTAN
     Indication: Product used for unknown indication
     Dosage: 80-12.5 MG
     Route: 048
     Dates: start: 20240212, end: 20240517
  5. DIOVAN HCT [Concomitant]
     Active Substance: HYDROCHLOROTHIAZIDE\VALSARTAN
     Dosage: 80-12.5 MG
     Route: 048
     Dates: start: 20220820
  6. DIOVAN HCT [Concomitant]
     Active Substance: HYDROCHLOROTHIAZIDE\VALSARTAN
     Dosage: 160-25 MG DOSE ADJUSTMENT
     Route: 048
     Dates: start: 20230908, end: 20230911
  7. DIOVAN HCT [Concomitant]
     Active Substance: HYDROCHLOROTHIAZIDE\VALSARTAN
     Dosage: 80-12.5 MG
     Route: 048
     Dates: start: 20230908, end: 20230922
  8. DIOVAN HCT [Concomitant]
     Active Substance: HYDROCHLOROTHIAZIDE\VALSARTAN
     Dosage: 80-12.5 MG DISCONTINUED
     Route: 048
     Dates: start: 20230911, end: 20230922
  9. DIOVAN HCT [Concomitant]
     Active Substance: HYDROCHLOROTHIAZIDE\VALSARTAN
     Dosage: 80-12.5 MG
     Route: 048
     Dates: start: 20240517, end: 20240517
  10. ALLEGRA ALLERGY [Concomitant]
     Active Substance: FEXOFENADINE HYDROCHLORIDE
     Indication: Product used for unknown indication
     Route: 048
     Dates: start: 20240118
  11. NEXLIZET [Concomitant]
     Active Substance: BEMPEDOIC ACID\EZETIMIBE
     Indication: Product used for unknown indication
     Dosage: 180-10 MG ?TAKE BY MOUTH ONCE DAILY AS NEEDED
     Route: 048
  12. TRELEGY ELLIPTA [Concomitant]
     Active Substance: FLUTICASONE FUROATE\UMECLIDINIUM BROMIDE\VILANTEROL TRIFENATATE
     Indication: Product used for unknown indication
  13. EZETIMIBE [Concomitant]
     Active Substance: EZETIMIBE
     Indication: Product used for unknown indication
  14. IVERMECTIN [Concomitant]
     Active Substance: IVERMECTIN
     Indication: Product used for unknown indication
  15. FLONASE [Concomitant]
     Active Substance: FLUTICASONE PROPIONATE
     Indication: Product used for unknown indication
     Dosage: 50 MCG/ACT?PLACE 1 SPRAY INTO BOTH NOSTRILS TWICE DAILY
     Dates: start: 20230509, end: 20240118
  16. ROBAXIN [Concomitant]
     Active Substance: METHOCARBAMOL
     Indication: Product used for unknown indication
     Dosage: EVERY 8 HOURS
     Route: 048
     Dates: start: 20240123
  17. ALBUTEROL [Concomitant]
     Active Substance: ALBUTEROL
     Indication: Dyspnoea
     Dosage: (2.5 MG/3ML) 0.083% ?INHALE 1 VIAL VIA NEBULIZER BY MOUTH THREE TIMES DAILY AS NEEDED
     Route: 048
     Dates: start: 20231228
  18. ALBUTEROL [Concomitant]
     Active Substance: ALBUTEROL
     Indication: Wheezing
  19. ALBUTEROL SULFATE [Concomitant]
     Active Substance: ALBUTEROL SULFATE
     Indication: Product used for unknown indication
     Dosage: 108 (90 BASE) MCG/ACT?INHALE 2 PUFFS BY MOUTH EVERY 4 TO 6 HOURS AS NEEDED
     Route: 048
     Dates: start: 20231005
  20. SYMBICORT [Concomitant]
     Active Substance: BUDESONIDE\FORMOTEROL FUMARATE DIHYDRATE
     Indication: Product used for unknown indication
     Dosage: 160-4.5 MCG/ACTUATION INHALER?INHALE 2 PUFFS BY MOUTH TWICE DAILY IN THE MORNING AND IN THE EVENING.
     Dates: start: 20240131, end: 20240603
  21. ZYRTEC [Concomitant]
     Active Substance: CETIRIZINE HYDROCHLORIDE
     Indication: Product used for unknown indication
     Route: 048
     Dates: start: 20230509, end: 20240313
  22. TRELEGY ELLIPTA [Concomitant]
     Active Substance: FLUTICASONE FUROATE\UMECLIDINIUM BROMIDE\VILANTEROL TRIFENATATE
     Indication: Product used for unknown indication
     Dates: start: 20240402
  23. ZYLOPRIM [Concomitant]
     Active Substance: ALLOPURINOL
     Indication: Product used for unknown indication
     Route: 048
     Dates: start: 20240216
  24. NORVASC [Concomitant]
     Active Substance: AMLODIPINE BESYLATE
     Indication: Product used for unknown indication
     Route: 048
     Dates: start: 20230724, end: 20230922
  25. PEPCID [Concomitant]
     Active Substance: FAMOTIDINE
     Indication: Product used for unknown indication
     Route: 048
     Dates: start: 20210413, end: 20240313
  26. FLOMAX [Concomitant]
     Active Substance: TAMSULOSIN HYDROCHLORIDE
     Indication: Product used for unknown indication
     Route: 048
     Dates: start: 20230908, end: 20240313
  27. OMNICEF [Concomitant]
     Active Substance: CEFDINIR
     Indication: Product used for unknown indication
     Route: 048
     Dates: start: 20231228, end: 20240116
  28. DELTASONE [Concomitant]
     Active Substance: PREDNISONE
     Indication: Product used for unknown indication
     Dosage: TAKE 2 TABLETS BY MOUTH DAILY FOR 5 DAYS?THERAPY COMPLETED
     Route: 048
     Dates: start: 20231228, end: 20240116
  29. DELTASONE [Concomitant]
     Active Substance: PREDNISONE
     Dosage: TAKE 4 PILLS FOR 3 DAYS 3 PILLS FOR 3 DAYS 2 PILLS FOR 3 DAYS THEN 1 DAILY UNTIL SEEN WITH FOOD IN T
     Route: 048
     Dates: start: 20230402, end: 20240603
  30. ULTRAM [Concomitant]
     Active Substance: TRAMADOL HYDROCHLORIDE
     Indication: Pain
     Route: 048
     Dates: start: 20240123, end: 20240311
  31. MOTRIN [Concomitant]
     Active Substance: IBUPROFEN
     Indication: Pain
     Route: 048
     Dates: start: 20240123, end: 20240311
  32. TYLENOL [Concomitant]
     Active Substance: ACETAMINOPHEN
     Indication: Pain
     Route: 048
     Dates: start: 20240123, end: 20240311
  33. ZITHROMAX [Concomitant]
     Active Substance: AZITHROMYCIN DIHYDRATE
     Indication: Product used for unknown indication
     Route: 048
     Dates: start: 20240311, end: 20240402
  34. MEDROL [Concomitant]
     Active Substance: METHYLPREDNISOLONE
     Indication: Product used for unknown indication
     Route: 048
     Dates: start: 20240311, end: 20240402
  35. GOLYTELY [Concomitant]
     Active Substance: POLYETHYLENE GLYCOL 3350\POTASSIUM CHLORIDE\SODIUM BICARBONATE\SODIUM CHLORIDE\SODIUM SULFATE
     Indication: Product used for unknown indication
     Route: 048
     Dates: start: 20240312, end: 20240315
  36. BAYER ASPIRIN [Concomitant]
     Active Substance: ASPIRIN
     Indication: Product used for unknown indication
     Dates: start: 20220510

REACTIONS (46)
  - Aspartate aminotransferase increased [Unknown]
  - Alanine aminotransferase increased [Unknown]
  - Intertrigo [Unknown]
  - Squamous cell carcinoma of skin [Unknown]
  - Blood creatinine increased [Unknown]
  - Eosinophil count increased [Unknown]
  - Blood urea increased [Unknown]
  - Infection [Unknown]
  - Hyperuricaemia [Unknown]
  - Fatigue [Unknown]
  - Nasal septum deviation [Unknown]
  - Disease progression [Unknown]
  - Cough variant asthma [Unknown]
  - Sinus disorder [Unknown]
  - Spinal osteoarthritis [Unknown]
  - Glycosylated haemoglobin increased [Unknown]
  - Vitamin B12 increased [Unknown]
  - High density lipoprotein decreased [Unknown]
  - Large intestine polyp [Unknown]
  - Colorectal adenoma [Unknown]
  - Positron emission tomogram abnormal [Unknown]
  - Blood immunoglobulin G decreased [Unknown]
  - Diverticulum intestinal [Unknown]
  - Alpha-2 macroglobulin increased [Unknown]
  - Light chain analysis increased [Unknown]
  - Essential hypertension [Unknown]
  - Benign prostatic hyperplasia [Unknown]
  - Pulmonary mass [Unknown]
  - Dyspnoea exertional [Unknown]
  - Cough [Unknown]
  - Glucose tolerance impaired [Unknown]
  - Bronchial hyperreactivity [Unknown]
  - Tracheobronchitis [Unknown]
  - Upper-airway cough syndrome [Unknown]
  - Colon cancer [Unknown]
  - Hiatus hernia [Unknown]
  - Gastrooesophageal reflux disease [Unknown]
  - Rhinitis allergic [Unknown]
  - Rhabdomyolysis [Unknown]
  - Abdominal pain lower [Unknown]
  - Abdominal pain [Unknown]
  - Drug intolerance [Unknown]
  - Alopecia [Unknown]
  - Oedema peripheral [Unknown]
  - Blood lactate dehydrogenase increased [Unknown]
  - Blood calcium increased [Unknown]

NARRATIVE: CASE EVENT DATE: 20230908
